FAERS Safety Report 19730934 (Version 1)
Quarter: 2021Q3

REPORT INFORMATION
  Report Type: Report from Study
  Country: BR (occurrence: BR)
  Receive Date: 20210820
  Receipt Date: 20210820
  Transmission Date: 20211014
  Serious: Yes (Disabling, Other)
  Sender: FDA-Public Use
  Company Number: BR-TAKEDA-BR202024156

PATIENT
  Sex: Male
  Weight: 40 kg

DRUGS (12)
  1. IDURSULFASE [Suspect]
     Active Substance: IDURSULFASE
     Indication: MUCOPOLYSACCHARIDOSIS II
     Dosage: 3 DOSAGE FORM
     Route: 065
  2. TOPIRAMATE. [Concomitant]
     Active Substance: TOPIRAMATE
     Indication: EPILEPSY
     Dosage: 100 MILLIGRAM, 1X/DAY:QD
     Route: 065
     Dates: start: 2010
  3. RISPERIDONE. [Concomitant]
     Active Substance: RISPERIDONE
     Indication: INSOMNIA
  4. MONTELAIR [Concomitant]
     Active Substance: MONTELUKAST SODIUM
     Indication: HYPERSENSITIVITY
     Dosage: 10 MILLIGRAM, 1X/DAY:QD
     Route: 065
     Dates: start: 202005
  5. RISPERIDONE. [Concomitant]
     Active Substance: RISPERIDONE
     Indication: SEDATIVE THERAPY
     Dosage: 1 MILLIGRAM, 1X/DAY:QD
     Route: 065
     Dates: start: 2010
  6. IDURSULFASE [Suspect]
     Active Substance: IDURSULFASE
     Dosage: UNK UNK, 1/WEEK
     Route: 042
     Dates: start: 2010
  7. BACLOFEN. [Concomitant]
     Active Substance: BACLOFEN
     Indication: ATROPHY
  8. BACLOFEN. [Concomitant]
     Active Substance: BACLOFEN
     Indication: BONE DISORDER
     Dosage: 10 MILLIGRAM, TID
     Route: 065
     Dates: start: 2010
  9. GARDENAL [PHENOBARBITAL] [Concomitant]
     Active Substance: PHENOBARBITAL
     Indication: EPILEPSY
     Dosage: 100 MILLIGRAM, 1X/DAY:QD
     Route: 065
     Dates: start: 2010
  10. NOEX [Concomitant]
     Active Substance: BUDESONIDE
     Indication: DYSPNOEA
     Dosage: 2 SPRAYS ON EACH NOSTRIL
     Route: 045
     Dates: start: 2010
  11. IDURSULFASE [Suspect]
     Active Substance: IDURSULFASE
     Dosage: UNK UNK, 1/WEEK
     Route: 065
     Dates: start: 20100101
  12. IDURSULFASE [Suspect]
     Active Substance: IDURSULFASE
     Dosage: 4 DOSAGE FORM
     Route: 042

REACTIONS (11)
  - Respiratory tract infection [Recovered/Resolved]
  - Incorrect dose administered [Unknown]
  - Pharyngitis [Recovered/Resolved]
  - Off label use [Unknown]
  - Influenza [Unknown]
  - Insomnia [Not Recovered/Not Resolved]
  - Product dose omission issue [Unknown]
  - Seizure [Not Recovered/Not Resolved]
  - Dental caries [Not Recovered/Not Resolved]
  - Aphasia [Not Recovered/Not Resolved]
  - Walking disability [Not Recovered/Not Resolved]
